FAERS Safety Report 12342645 (Version 4)
Quarter: 2016Q2

REPORT INFORMATION
  Report Type: Spontaneous
  Country: GB (occurrence: GB)
  Receive Date: 20160506
  Receipt Date: 20160628
  Transmission Date: 20160815
  Serious: Yes (Hospitalization)
  Sender: FDA-Public Use
  Company Number: GB-009507513-1605GBR002081

PATIENT
  Age: 68 Year
  Sex: Female

DRUGS (34)
  1. DEXAMETHASONE. [Suspect]
     Active Substance: DEXAMETHASONE
     Indication: PLASMA CELL MYELOMA
     Dosage: 40 MG, 4 DAYS OF A 28 DAY CYCLE
     Route: 048
     Dates: start: 20130918, end: 20160413
  2. ACCRETE D3 [Concomitant]
     Indication: HYPOCALCAEMIA
     Dosage: 1 (DOSAGE FORMS, 2 IN 1 D)
     Route: 048
     Dates: start: 20131022, end: 20131022
  3. TEMAZEPAM. [Concomitant]
     Active Substance: TEMAZEPAM
     Indication: INSOMNIA
     Dosage: 10 MG, (1 IN 1D)
     Route: 048
     Dates: start: 20130919
  4. AMOXICLAV [Concomitant]
     Active Substance: AMOXICILLIN\CLAVULANIC ACID
     Indication: ESCHERICHIA BACTERAEMIA
     Dosage: 1.2 G, TID
     Route: 041
     Dates: start: 20160301, end: 20160308
  5. FERROUS FUMARATE [Concomitant]
     Active Substance: FERROUS FUMARATE
     Dosage: 625 MG, TID
     Route: 048
     Dates: start: 20160418
  6. XYLOMETAZOLINE HYDROCHLORIDE [Concomitant]
     Active Substance: XYLOMETAZOLINE HYDROCHLORIDE
     Indication: PRODUCT USED FOR UNKNOWN INDICATION
     Dosage: 1 DOSAGE , TID
     Route: 045
     Dates: start: 20160321, end: 20160326
  7. AMOXICILLIN. [Concomitant]
     Active Substance: AMOXICILLIN
     Indication: PRODUCT USED FOR UNKNOWN INDICATION
     Dosage: 500 MG, TID
     Route: 048
     Dates: start: 20160311, end: 20160315
  8. AMOXICLAV [Concomitant]
     Active Substance: AMOXICILLIN\CLAVULANIC ACID
     Dosage: 625 MG, TID
     Route: 048
     Dates: start: 20160311, end: 20160315
  9. FOLIC ACID. [Concomitant]
     Active Substance: FOLIC ACID
     Indication: PRODUCT USED FOR UNKNOWN INDICATION
     Dosage: 5 MG, 1 IN 1 D
     Route: 048
     Dates: start: 20141112
  10. ACYCLOVIR. [Concomitant]
     Active Substance: ACYCLOVIR
     Indication: ANTIVIRAL PROPHYLAXIS
     Dosage: 400 MG, BID
     Route: 048
     Dates: start: 20130918
  11. DOMPERIDONE [Concomitant]
     Active Substance: DOMPERIDONE
     Indication: MYALGIA
     Dosage: 10 MG, TID
     Route: 048
     Dates: start: 20151101
  12. DOXYCYCLINE. [Concomitant]
     Active Substance: DOXYCYCLINE
     Indication: PRODUCT USED FOR UNKNOWN INDICATION
     Dosage: 100 MG, 1 IN 1D
     Route: 048
     Dates: start: 20151010
  13. LAXIDO [Concomitant]
     Active Substance: POLYETHYLENE GLYCOL 3350\POTASSIUM CHLORIDE\SODIUM BICARBONATE\SODIUM CHLORIDE
     Indication: PRODUCT USED FOR UNKNOWN INDICATION
     Dosage: 1 DF, BID
     Route: 048
     Dates: start: 20160307
  14. MAGNESIUM GLYCEROPHOSPHATE [Concomitant]
     Active Substance: MAGNESIUM GLYCEROPHOSPHATE
     Indication: HYPOMAGNESAEMIA
     Dosage: 4 MMOL, BID
     Route: 048
     Dates: start: 20130924
  15. NASOBEC [Concomitant]
     Indication: PRODUCT USED FOR UNKNOWN INDICATION
     Dosage: 50 MG, BID
     Route: 045
     Dates: start: 20160325, end: 20160404
  16. DALTEPARIN SODIUM [Concomitant]
     Active Substance: DALTEPARIN SODIUM
     Indication: PRODUCT USED FOR UNKNOWN INDICATION
     Dosage: 625 MG, TID
     Route: 048
     Dates: start: 20160311, end: 20160315
  17. DOXYCYCLINE. [Concomitant]
     Active Substance: DOXYCYCLINE
     Indication: SINUSITIS
     Dosage: 100 MG, 1 IN 1D
     Route: 048
     Dates: start: 20160322, end: 20160403
  18. THIAMINE. [Concomitant]
     Active Substance: THIAMINE
     Indication: PRODUCT USED FOR UNKNOWN INDICATION
     Dosage: 2 DOSAGE, TID
     Route: 048
     Dates: start: 20141112
  19. REVLIMID [Suspect]
     Active Substance: LENALIDOMIDE
     Indication: PLASMA CELL MYELOMA
     Dosage: 10 MG, 21 IN 28 DAYS
     Route: 048
     Dates: start: 20130918, end: 20160413
  20. ASPIRIN. [Concomitant]
     Active Substance: ASPIRIN
     Indication: THROMBOSIS PROPHYLAXIS
     Dosage: 75 MG, 1 IN 1 D
     Route: 048
     Dates: start: 20131211
  21. CARBIMAZOLE [Concomitant]
     Active Substance: CARBIMAZOLE
     Indication: PRODUCT USED FOR UNKNOWN INDICATION
     Dosage: 5 MG, QOD
     Route: 048
     Dates: start: 20140117
  22. CARBIMAZOLE [Concomitant]
     Active Substance: CARBIMAZOLE
     Indication: BASEDOW^S DISEASE
     Dosage: 10 MG, QOD
     Route: 048
     Dates: start: 20141117
  23. FERROUS FUMARATE [Concomitant]
     Active Substance: FERROUS FUMARATE
     Indication: PRODUCT USED FOR UNKNOWN INDICATION
     Dosage: 625 MG, TID
     Route: 048
     Dates: start: 20160311, end: 20160315
  24. CANDESARTAN [Concomitant]
     Active Substance: CANDESARTAN
     Indication: MITRAL VALVE INCOMPETENCE
     Dosage: 4 MG, 1 IN 1 D
     Route: 048
     Dates: start: 20141211
  25. FERROUS FUMARATE [Concomitant]
     Active Substance: FERROUS FUMARATE
     Indication: ESCHERICHIA BACTERAEMIA
     Dosage: 1.2 MG, TID
     Route: 041
     Dates: start: 20160301, end: 20160308
  26. RANITIDINE. [Concomitant]
     Active Substance: RANITIDINE
     Indication: GASTRITIS PROPHYLAXIS
     Dosage: 150 MG, BID
     Route: 048
     Dates: start: 20130918
  27. CALCIUM CARBONATE. [Concomitant]
     Active Substance: CALCIUM CARBONATE
     Indication: PRODUCT USED FOR UNKNOWN INDICATION
     Dosage: 625 MG, TID
     Route: 048
     Dates: start: 20160418
  28. AMOXICLAV [Concomitant]
     Active Substance: AMOXICILLIN\CLAVULANIC ACID
     Indication: PRODUCT USED FOR UNKNOWN INDICATION
     Dosage: 625 MG, TID
     Route: 048
     Dates: start: 20160418
  29. DOXYCYCLINE. [Concomitant]
     Active Substance: DOXYCYCLINE
     Dosage: 200 MG, 1 IN 1D
     Route: 048
     Dates: start: 20160321
  30. PAMIDRONIC ACID [Concomitant]
     Active Substance: PAMIDRONIC ACID
     Indication: PROPHYLAXIS
     Dosage: 30 MG, 3 IN 1M
     Route: 041
     Dates: start: 20150722
  31. CALCIUM CARBONATE. [Concomitant]
     Active Substance: CALCIUM CARBONATE
     Indication: ESCHERICHIA BACTERAEMIA
     Dosage: 1.2 G, TID
     Route: 041
     Dates: start: 20160301, end: 20160308
  32. CALCIUM CARBONATE. [Concomitant]
     Active Substance: CALCIUM CARBONATE
     Dosage: 625 MG, TID
     Route: 048
     Dates: start: 20160311, end: 20160315
  33. DALTEPARIN SODIUM [Concomitant]
     Active Substance: DALTEPARIN SODIUM
     Dosage: 625 MG, TID
     Route: 048
     Dates: start: 20160418
  34. DALTEPARIN SODIUM [Concomitant]
     Active Substance: DALTEPARIN SODIUM
     Indication: ESCHERICHIA BACTERAEMIA
     Dosage: 1.2 G, TID
     Route: 041
     Dates: start: 20160301, end: 20160308

REACTIONS (2)
  - Escherichia bacteraemia [Recovered/Resolved]
  - Off label use [Recovered/Resolved]

NARRATIVE: CASE EVENT DATE: 20130918
